FAERS Safety Report 25359757 (Version 2)
Quarter: 2025Q2

REPORT INFORMATION
  Report Type: Spontaneous
  Country: JP (occurrence: JP)
  Receive Date: 20250526
  Receipt Date: 20250530
  Transmission Date: 20250717
  Serious: Yes (Other)
  Sender: TAKEDA
  Company Number: JP-JNJFOC-20250527554

PATIENT
  Age: 62 Year
  Sex: Female

DRUGS (21)
  1. VELCADE [Suspect]
     Active Substance: BORTEZOMIB
     Indication: Plasma cell myeloma
  2. VELCADE [Suspect]
     Active Substance: BORTEZOMIB
  3. DARATUMUMAB [Suspect]
     Active Substance: DARATUMUMAB
     Indication: Plasma cell myeloma
  4. DARATUMUMAB [Suspect]
     Active Substance: DARATUMUMAB
  5. DARATUMUMAB [Suspect]
     Active Substance: DARATUMUMAB
  6. CYCLOPHOSPHAMIDE [Concomitant]
     Active Substance: CYCLOPHOSPHAMIDE
     Indication: Plasma cell myeloma
  7. DEXAMETHASONE [Concomitant]
     Active Substance: DEXAMETHASONE
     Indication: Plasma cell myeloma
  8. DEXAMETHASONE [Concomitant]
     Active Substance: DEXAMETHASONE
  9. DEXAMETHASONE [Concomitant]
     Active Substance: DEXAMETHASONE
  10. DEXAMETHASONE [Concomitant]
     Active Substance: DEXAMETHASONE
  11. DEXAMETHASONE [Concomitant]
     Active Substance: DEXAMETHASONE
  12. DEXAMETHASONE [Concomitant]
     Active Substance: DEXAMETHASONE
  13. DEXAMETHASONE [Concomitant]
     Active Substance: DEXAMETHASONE
  14. LENALIDOMIDE HEMIHYDRATE [Concomitant]
     Active Substance: LENALIDOMIDE HEMIHYDRATE
     Indication: Plasma cell myeloma
  15. LENALIDOMIDE HEMIHYDRATE [Concomitant]
     Active Substance: LENALIDOMIDE HEMIHYDRATE
  16. LENALIDOMIDE HEMIHYDRATE [Concomitant]
     Active Substance: LENALIDOMIDE HEMIHYDRATE
  17. IXAZOMIB CITRATE [Concomitant]
     Active Substance: IXAZOMIB CITRATE
     Indication: Plasma cell myeloma
  18. ISATUXIMAB [Concomitant]
     Active Substance: ISATUXIMAB
     Indication: Plasma cell myeloma
  19. POMALIDOMIDE [Concomitant]
     Active Substance: POMALIDOMIDE
     Indication: Plasma cell myeloma
  20. CARFILZOMIB [Concomitant]
     Active Substance: CARFILZOMIB
     Indication: Plasma cell myeloma
  21. VALGANCICLOVIR HYDROCHLORIDE [Concomitant]
     Active Substance: VALGANCICLOVIR HYDROCHLORIDE
     Indication: Cytomegalovirus chorioretinitis

REACTIONS (1)
  - Therapeutic product effect incomplete [Unknown]
